FAERS Safety Report 8817606 (Version 2)
Quarter: 2012Q4

REPORT INFORMATION
  Report Type: 
  Country: US (occurrence: US)
  Receive Date: 20121001
  Receipt Date: 20121205
  Transmission Date: 20130627
  Serious: No
  Sender: FDA-Public Use
  Company Number: US-009507513-1208USA011771

PATIENT
  Sex: Female

DRUGS (4)
  1. VICTRELIS [Suspect]
     Indication: HEPATITIS C
     Dosage: UNK
     Dates: start: 20120709
  2. RIBASPHERE [Suspect]
     Indication: HEPATITIS C
     Dosage: 5 DF, qd
     Dates: start: 20120610
  3. RIBASPHERE [Suspect]
     Dosage: 4 DF, qd
  4. PEGASYS [Suspect]
     Indication: HEPATITIS C
     Dosage: UNK
     Dates: start: 20120610

REACTIONS (23)
  - Haemoglobin abnormal [Unknown]
  - Eating disorder [Unknown]
  - Feeling abnormal [Unknown]
  - Lethargy [Unknown]
  - Constipation [Unknown]
  - Malaise [Unknown]
  - Pain [Unknown]
  - Anaemia [Unknown]
  - Asthenia [Unknown]
  - Fatigue [Unknown]
  - Dizziness [Unknown]
  - Dizziness [Unknown]
  - Anaemia [Unknown]
  - Dizziness [Unknown]
  - Fatigue [Unknown]
  - Dysgeusia [Unknown]
  - Dry mouth [Unknown]
  - Weight decreased [Unknown]
  - Irritability [Unknown]
  - Fatigue [Unknown]
  - Myalgia [Unknown]
  - Weight decreased [Unknown]
  - Dysgeusia [Unknown]
